FAERS Safety Report 11995318 (Version 1)
Quarter: 2016Q1

REPORT INFORMATION
  Report Type: Spontaneous
  Country: US (occurrence: US)
  Receive Date: 20160203
  Receipt Date: 20160203
  Transmission Date: 20160526
  Serious: Yes (Hospitalization, Other)
  Sender: FDA-Public Use
  Company Number: US-HOSPIRA-2181589

PATIENT
  Age: 29 Year
  Sex: Female
  Weight: 74.83 kg

DRUGS (12)
  1. ADDERALL [Concomitant]
     Active Substance: AMPHETAMINE ASPARTATE\AMPHETAMINE SULFATE\DEXTROAMPHETAMINE SACCHARATE\DEXTROAMPHETAMINE SULFATE
     Indication: ATTENTION DEFICIT/HYPERACTIVITY DISORDER
     Route: 065
  2. GABAPENTIN. [Concomitant]
     Active Substance: GABAPENTIN
     Indication: SPINAL CORD HERNIATION
     Route: 048
  3. DICLOFENAC POTASSIUM. [Concomitant]
     Active Substance: DICLOFENAC POTASSIUM
     Indication: ANTIINFLAMMATORY THERAPY
     Route: 048
     Dates: end: 20140110
  4. CELESTONE [Concomitant]
     Active Substance: BETAMETHASONE
     Indication: NERVE BLOCK
     Route: 042
  5. MULTIVITAMIN                       /00097801/ [Concomitant]
     Active Substance: VITAMINS
     Indication: VITAMIN SUPPLEMENTATION
     Dosage: DAILY
     Route: 048
  6. SERTRALINE [Concomitant]
     Active Substance: SERTRALINE HYDROCHLORIDE
     Indication: DEPRESSION
     Dosage: DAILY
     Route: 048
  7. VERSED [Concomitant]
     Active Substance: MIDAZOLAM HYDROCHLORIDE
     Indication: NERVE BLOCK
     Route: 042
  8. GABAPENTIN. [Concomitant]
     Active Substance: GABAPENTIN
     Indication: NERVOUS SYSTEM DISORDER
     Route: 048
  9. ADDERALL [Concomitant]
     Active Substance: AMPHETAMINE ASPARTATE\AMPHETAMINE SULFATE\DEXTROAMPHETAMINE SACCHARATE\DEXTROAMPHETAMINE SULFATE
     Indication: DEPRESSION
     Route: 065
  10. CLONAZEPAM. [Concomitant]
     Active Substance: CLONAZEPAM
     Indication: ANXIETY
     Route: 048
  11. SUBLIMAZE [Concomitant]
     Active Substance: FENTANYL CITRATE
     Indication: NERVE BLOCK
     Route: 042
  12. MARCAINE [Suspect]
     Active Substance: BUPIVACAINE HYDROCHLORIDE
     Indication: NERVE BLOCK
     Route: 008
     Dates: start: 20130718

REACTIONS (31)
  - Radiculopathy [Unknown]
  - Angiopathy [Unknown]
  - Bursitis [Unknown]
  - Rotator cuff syndrome [Unknown]
  - Product label issue [Unknown]
  - Drug effect delayed [Recovered/Resolved]
  - Cerebrovascular accident [Unknown]
  - Ascites [Unknown]
  - Thoracic outlet syndrome [Unknown]
  - Product quality issue [Unknown]
  - Product formulation issue [Unknown]
  - Weight increased [Unknown]
  - Neuritis [Unknown]
  - Ovarian cyst [Recovering/Resolving]
  - Drug administration error [Unknown]
  - Autonomic nervous system imbalance [Unknown]
  - Bronchitis [Unknown]
  - Crying [Recovering/Resolving]
  - Endothelial dysfunction [Unknown]
  - Cardiac disorder [Unknown]
  - Product contamination physical [Unknown]
  - Coronary artery disease [Unknown]
  - Sepsis [Unknown]
  - Headache [Recovering/Resolving]
  - Drug effect prolonged [Unknown]
  - Tricuspid valve incompetence [Unknown]
  - Interstitial lung disease [Unknown]
  - Asthma [Unknown]
  - Seizure like phenomena [Recovering/Resolving]
  - Inappropriate affect [Recovering/Resolving]
  - Tinnitus [Recovered/Resolved]

NARRATIVE: CASE EVENT DATE: 2013
